FAERS Safety Report 7609532-6 (Version None)
Quarter: 2011Q3

REPORT INFORMATION
  Report Type: 
  Country: None (occurrence: None)
  Receive Date: 20110714
  Receipt Date: 20110701
  Transmission Date: 20111222
  Serious: Yes (Other)
  Sender: FDA-Public Use
  Company Number: JP-UCBSA-036556

PATIENT
  Age: 45 Year
  Sex: Female

DRUGS (1)
  1. XYZAL [Suspect]
     Route: 048
     Dates: start: 20101210, end: 20110423

REACTIONS (3)
  - LIVER FUNCTION TEST ABNORMAL [None]
  - OEDEMA [None]
  - MALAISE [None]
